FAERS Safety Report 6697570-X (Version None)
Quarter: 2010Q2

REPORT INFORMATION
  Report Type: 
  Country: None (occurrence: None)
  Receive Date: 20100426
  Receipt Date: 20090619
  Transmission Date: 20101027
  Serious: No
  Sender: FDA-Public Use
  Company Number: US-ABBOTT-09P-163-0581290-00

PATIENT
  Sex: Female
  Weight: 41.768 kg

DRUGS (3)
  1. AZMACORT [Suspect]
     Indication: SEASONAL ALLERGY
  2. AZMACORT [Suspect]
     Indication: ASTHMA
  3. FLONASE [Concomitant]
     Indication: DRUG USE FOR UNKNOWN INDICATION

REACTIONS (4)
  - DIZZINESS [None]
  - HEADACHE [None]
  - MUSCLE SPASMS [None]
  - OROPHARYNGEAL PAIN [None]
